FAERS Safety Report 17426337 (Version 1)
Quarter: 2020Q1

REPORT INFORMATION
  Report Type: Spontaneous
  Country: JP (occurrence: JP)
  Receive Date: 20200217
  Receipt Date: 20200217
  Transmission Date: 20200409
  Serious: Yes (Other)
  Sender: FDA-Public Use
  Company Number: JP-PFIZER INC-2020063656

PATIENT

DRUGS (1)
  1. SUTENT [Suspect]
     Active Substance: SUNITINIB MALATE
     Dosage: 37.5 MG, (3 CAPSULES)
     Route: 048

REACTIONS (3)
  - Depressed level of consciousness [Unknown]
  - Feeling abnormal [Unknown]
  - Dizziness [Unknown]
